FAERS Safety Report 8295536-X (Version None)
Quarter: 2012Q2

REPORT INFORMATION
  Report Type: 
  Country: None (occurrence: None)
  Receive Date: 20120418
  Receipt Date: 20120405
  Transmission Date: 20120825
  Serious: Yes (Hospitalization)
  Sender: FDA-Public Use
  Company Number: BR-ELI_LILLY_AND_COMPANY-BR201202007831

PATIENT
  Age: 65 Year
  Sex: Female
  Weight: 77.5 kg

DRUGS (8)
  1. CLONAZEPAM [Concomitant]
     Dosage: UNK, UNKNOWN
     Route: 065
  2. ZYPREXA [Suspect]
     Dosage: 5 MG, UNKNOWN
     Route: 065
     Dates: start: 20090401
  3. ZYPREXA [Suspect]
     Dosage: 10 MG, BID
     Route: 065
     Dates: start: 20111110
  4. TRAZODONE HCL [Concomitant]
     Dosage: UNK, UNKNOWN
     Route: 065
  5. CYMBALTA [Suspect]
     Dosage: UNK, UNKNOWN
     Route: 065
     Dates: start: 20090401
  6. OMEPRAZOLE [Concomitant]
     Dosage: UNK, UNKNOWN
     Route: 065
  7. ZYPREXA [Suspect]
     Dosage: UNK, UNKNOWN
     Route: 065
  8. AMPLICTIL [Concomitant]
     Dosage: UNK, UNKNOWN
     Route: 065

REACTIONS (7)
  - POOR QUALITY SLEEP [None]
  - STARING [None]
  - INSOMNIA [None]
  - AGITATION [None]
  - SOLILOQUY [None]
  - SOMNOLENCE [None]
  - HALLUCINATION [None]
